FAERS Safety Report 4549550-8 (Version None)
Quarter: 2005Q1

REPORT INFORMATION
  Report Type: 
  Country: None (occurrence: None)
  Receive Date: 20050111
  Receipt Date: 20041220
  Transmission Date: 20050727
  Serious: Yes (Hospitalization)
  Sender: FDA-Public Use
  Company Number: CH-MERCK-0412CHE00023

PATIENT
  Age: 61 Year
  Sex: Male

DRUGS (6)
  1. OMEPRAZOLE [Concomitant]
     Indication: DYSPEPSIA
     Route: 048
  2. HOMEOPATHIC MEDICATIONS (UNSPECIFIED) [Concomitant]
     Indication: DEPRESSION
     Route: 048
     Dates: start: 20020420
  3. VIOXX [Suspect]
     Indication: OSTEOARTHRITIS
     Route: 048
     Dates: start: 20000101, end: 20040101
  4. VIOXX [Suspect]
     Indication: OSTEOARTHRITIS
     Route: 048
     Dates: start: 20000203, end: 20041101
  5. VIOXX [Suspect]
     Route: 048
     Dates: start: 20000101, end: 20040101
  6. VIOXX [Suspect]
     Route: 048
     Dates: start: 20000203, end: 20041101

REACTIONS (13)
  - ARTHRALGIA [None]
  - ARTHROSCOPY [None]
  - ASTHENIA [None]
  - CEREBRAL ISCHAEMIA [None]
  - CHEST PAIN [None]
  - DEPRESSED MOOD [None]
  - DIZZINESS [None]
  - DYSPNOEA [None]
  - FEAR [None]
  - HEADACHE [None]
  - KNEE ARTHROPLASTY [None]
  - PAIN [None]
  - RADICULAR SYNDROME [None]
